FAERS Safety Report 14769029 (Version 1)
Quarter: 2018Q2

REPORT INFORMATION
  Report Type: Spontaneous
  Country: PT (occurrence: PT)
  Receive Date: 20180417
  Receipt Date: 20180417
  Transmission Date: 20180711
  Serious: Yes (Other)
  Sender: FDA-Public Use
  Company Number: PT-MYLANLABS-2018M1022319

PATIENT
  Age: 39 Year
  Sex: Female

DRUGS (5)
  1. PYRIDOSTIGMINE [Suspect]
     Active Substance: PYRIDOSTIGMINE
     Indication: NEUROMUSCULAR BLOCKADE
     Dosage: 180 MG DAILY
     Route: 065
  2. FLUOXETINE [Suspect]
     Active Substance: FLUOXETINE HYDROCHLORIDE
     Indication: MYASTHENIC SYNDROME
     Dosage: 40 MG, QD
     Route: 065
  3. FLUOXETINE [Suspect]
     Active Substance: FLUOXETINE HYDROCHLORIDE
     Dosage: REINFORCED WITH THE PHASED DOSE INCREMENTS UNTIL 100 MG DAILY
     Route: 065
  4. PYRIDOSTIGMINE [Suspect]
     Active Substance: PYRIDOSTIGMINE
     Dosage: 360 MG
     Route: 065
  5. PYRIDOSTIGMINE [Suspect]
     Active Substance: PYRIDOSTIGMINE
     Dosage: 240 MG
     Route: 065

REACTIONS (5)
  - Cognitive disorder [Unknown]
  - Speech disorder [Unknown]
  - Condition aggravated [Recovering/Resolving]
  - Irritability [Unknown]
  - Myasthenic syndrome [Recovered/Resolved]
